FAERS Safety Report 13745878 (Version 2)
Quarter: 2017Q4

REPORT INFORMATION
  Report Type: Spontaneous
  Country: US (occurrence: US)
  Receive Date: 20170712
  Receipt Date: 20171012
  Transmission Date: 20180320
  Serious: No
  Sender: FDA-Public Use
  Company Number: US-GLAXOSMITHKLINE-US2017GSK106275

PATIENT
  Sex: Female
  Weight: 43.84 kg

DRUGS (1)
  1. SUMATRIPTAN (SUMATRIPTAN SUCCINATE) SOLUTION FOR INJECTION IN PRE-FILL [Suspect]
     Active Substance: SUMATRIPTAN
     Indication: HEADACHE
     Dosage: 6 MG, UNK
     Route: 042

REACTIONS (4)
  - Product quality issue [Unknown]
  - Injection site reaction [Unknown]
  - Surgery [Unknown]
  - Weight decreased [Unknown]
